FAERS Safety Report 17878579 (Version 4)
Quarter: 2020Q3

REPORT INFORMATION
  Report Type: Report from Study
  Country: CN (occurrence: CN)
  Receive Date: 20200610
  Receipt Date: 20200805
  Transmission Date: 20201103
  Serious: Yes (Death, Hospitalization)
  Sender: FDA-Public Use
  Company Number: CN-ROCHE-2197084

PATIENT
  Age: 35 Year
  Sex: Female
  Weight: 58 kg

DRUGS (26)
  1. RECOMBINANT HUMAN INTERLEUKIN?11 [Concomitant]
     Active Substance: OPRELVEKIN
     Dates: start: 20181011, end: 20181013
  2. ESTAZOLAM. [Concomitant]
     Active Substance: ESTAZOLAM
     Dates: start: 20180830
  3. ALBUMIN HUMAN [Concomitant]
     Active Substance: ALBUMIN HUMAN
     Dates: start: 20181029, end: 20181031
  4. LIDOCAINE HYDROCHLORIDE. [Concomitant]
     Active Substance: LIDOCAINE HYDROCHLORIDE
     Dates: start: 20181025, end: 20181025
  5. POTASSIUM CHLORIDE. [Concomitant]
     Active Substance: POTASSIUM CHLORIDE
     Dates: start: 20181102
  6. PROGESTERONE. [Concomitant]
     Active Substance: PROGESTERONE
     Dates: start: 20181012, end: 20181023
  7. CELEBREX [Concomitant]
     Active Substance: CELECOXIB
     Indication: PERIPHERAL SWELLING
     Dates: start: 20180730
  8. IRON PROTEINSUCCINYLATE [Concomitant]
     Indication: HYPOCALCAEMIA
     Route: 048
     Dates: start: 20181014
  9. INDOMETHACIN. [Concomitant]
     Active Substance: INDOMETHACIN
     Dates: start: 20181101
  10. TRASTUZUMAB EMTANSINE [Suspect]
     Active Substance: ADO-TRASTUZUMAB EMTANSINE
     Indication: BREAST CANCER METASTATIC
     Dosage: DATE OF MOST RECENT DOSE OF TRASTUZUMAB EMTANSINE PRIOR TO AE ONSET: 11/SEP/2018 AT DOSE OF 174 MG?D
     Route: 042
     Dates: start: 20180821
  11. RECOMBINANT HUMAN THROMBOPOIETIN [Concomitant]
     Active Substance: THROMBOPOIETIN
     Dates: start: 20180918, end: 20180920
  12. TORSEMIDE. [Concomitant]
     Active Substance: TORSEMIDE
     Indication: POLYURIA
     Dates: start: 20181029, end: 20181031
  13. CELECOXIB. [Concomitant]
     Active Substance: CELECOXIB
     Dates: start: 20181026
  14. INDOMETHACIN. [Concomitant]
     Active Substance: INDOMETHACIN
     Indication: PAIN IN EXTREMITY
     Dates: start: 20181031, end: 20181031
  15. GABAPENTIN. [Concomitant]
     Active Substance: GABAPENTIN
     Indication: PAIN IN EXTREMITY
     Dates: start: 20180730
  16. GABAPENTIN. [Concomitant]
     Active Substance: GABAPENTIN
     Indication: PERIPHERAL SWELLING
     Dates: start: 20181026
  17. MAGNESIUM ISOGLYCYRRHIZINATE [Concomitant]
     Active Substance: MAGNESIUM ISOGLYCYRRHIZINATE
     Dates: start: 20181015, end: 20181016
  18. RED BLOOD CELLS [Concomitant]
     Active Substance: HUMAN RED BLOOD CELL
     Dates: start: 20181015, end: 20181015
  19. IRON PROTEINSUCCINYLATE [Concomitant]
     Route: 048
     Dates: start: 20181016
  20. MEGESTROL ACETATE. [Concomitant]
     Active Substance: MEGESTROL ACETATE
     Dates: start: 20181015, end: 20181023
  21. LIDOCAINE HYDROCHLORIDE. [Concomitant]
     Active Substance: LIDOCAINE HYDROCHLORIDE
     Dates: start: 20181005, end: 20181005
  22. CELEBREX [Concomitant]
     Active Substance: CELECOXIB
     Indication: PAIN IN EXTREMITY
  23. CALCIUM GLUCONATE. [Concomitant]
     Active Substance: CALCIUM GLUCONATE
     Dates: start: 20181015, end: 20181015
  24. CALCIUM GLUCONATE. [Concomitant]
     Active Substance: CALCIUM GLUCONATE
     Dates: start: 20181101, end: 20181101
  25. FUROSEMIDE. [Concomitant]
     Active Substance: FUROSEMIDE
     Dates: start: 20181015, end: 20181015
  26. POTASSIUM CHLORIDE ER [Concomitant]
     Active Substance: POTASSIUM CHLORIDE
     Dates: start: 20181101, end: 20181108

REACTIONS (4)
  - Pleural effusion [Not Recovered/Not Resolved]
  - Hypocalcaemia [Not Recovered/Not Resolved]
  - Cardiac dysfunction [Unknown]
  - Pericardial effusion [Not Recovered/Not Resolved]

NARRATIVE: CASE EVENT DATE: 20181004
